FAERS Safety Report 13059753 (Version 1)
Quarter: 2016Q4

REPORT INFORMATION
  Report Type: Spontaneous
  Country: DK (occurrence: DK)
  Receive Date: 20161223
  Receipt Date: 20161223
  Transmission Date: 20170207
  Serious: Yes (Other)
  Sender: FDA-Public Use
  Company Number: DK-VIFOR (INTERNATIONAL) INC.-VIT-2016-08905

PATIENT
  Sex: Female

DRUGS (2)
  1. VENOFER [Suspect]
     Active Substance: IRON SUCROSE
     Indication: PRODUCT USED FOR UNKNOWN INDICATION
     Dates: start: 201606, end: 2016
  2. VELPHORO [Suspect]
     Active Substance: FERRIC OXYHYDROXIDE
     Indication: HYPERPHOSPHATAEMIA
     Dates: start: 201606, end: 2016

REACTIONS (2)
  - Serum ferritin increased [Unknown]
  - Transferrin saturation increased [Unknown]

NARRATIVE: CASE EVENT DATE: 2016
